FAERS Safety Report 8051660-8 (Version None)
Quarter: 2012Q1

REPORT INFORMATION
  Report Type: 
  Country: None (occurrence: None)
  Receive Date: 20120118
  Receipt Date: 20120106
  Transmission Date: 20120608
  Serious: No
  Sender: FDA-Public Use
  Company Number: US-BIOGENIDEC-2012BI000889

PATIENT
  Age: 47 Year
  Sex: Female

DRUGS (2)
  1. XOLAIR [Concomitant]
     Indication: ASTHMA
  2. TYSABRI [Suspect]
     Indication: MULTIPLE SCLEROSIS
     Route: 042
     Dates: start: 20110824

REACTIONS (8)
  - HEART RATE INCREASED [None]
  - SENSATION OF HEAVINESS [None]
  - PHOTOPSIA [None]
  - SENSORY DISTURBANCE [None]
  - MOBILITY DECREASED [None]
  - FEELING ABNORMAL [None]
  - COLD SWEAT [None]
  - MUSCLE TIGHTNESS [None]
